FAERS Safety Report 18275163 (Version 1)
Quarter: 2020Q3

REPORT INFORMATION
  Report Type: Report from Study
  Country: CO (occurrence: CO)
  Receive Date: 20200916
  Receipt Date: 20200916
  Transmission Date: 20201103
  Serious: Yes (Hospitalization, Other)
  Sender: FDA-Public Use
  Company Number: CO-JNJFOC-A-CH2018-180923

PATIENT
  Age: 42 Year
  Sex: Female
  Weight: 47 kg

DRUGS (13)
  1. OPSUMIT [Suspect]
     Active Substance: MACITENTAN
     Dosage: 0.5 DF, QD
     Route: 048
     Dates: start: 201809, end: 201812
  2. OPSUMIT [Suspect]
     Active Substance: MACITENTAN
     Dosage: 10 MG, OD
     Route: 048
     Dates: start: 20190404
  3. RIOCIGUAT. [Concomitant]
     Active Substance: RIOCIGUAT
  4. METOPROLOL. [Concomitant]
     Active Substance: METOPROLOL
  5. HYDROXYCHLOROQUINE [Concomitant]
     Active Substance: HYDROXYCHLOROQUINE
  6. OPSUMIT [Suspect]
     Active Substance: MACITENTAN
     Indication: PULMONARY ARTERIAL HYPERTENSION
     Dosage: 10 MG, QD
     Route: 048
     Dates: start: 20170910, end: 20190830
  7. RIVAROXABAN [Concomitant]
     Active Substance: RIVAROXABAN
  8. OMEPRAZOLE. [Concomitant]
     Active Substance: OMEPRAZOLE
  9. OPSUMIT [Suspect]
     Active Substance: MACITENTAN
     Dosage: 10 MG, QD
     Route: 048
     Dates: start: 201812
  10. VENTAVIS [Suspect]
     Active Substance: ILOPROST
     Indication: PRODUCT USED FOR UNKNOWN INDICATION
     Dosage: UNK, Q4HRS
     Route: 055
     Dates: start: 202003
  11. ACETAMINOPHEN. [Concomitant]
     Active Substance: ACETAMINOPHEN
  12. OPSUMIT [Suspect]
     Active Substance: MACITENTAN
     Dosage: 10 MG, QD
     Route: 048
     Dates: start: 20190906
  13. OPSUMIT [Suspect]
     Active Substance: MACITENTAN
     Dosage: 0.5 MG, QD
     Route: 048
     Dates: start: 201911, end: 20200827

REACTIONS (23)
  - Fluid retention [Recovering/Resolving]
  - Asthenia [Not Recovered/Not Resolved]
  - Brain natriuretic peptide increased [Recovering/Resolving]
  - Burning sensation [Not Recovered/Not Resolved]
  - Inflammation [Recovering/Resolving]
  - Therapeutic response decreased [Unknown]
  - Chest pain [Not Recovered/Not Resolved]
  - Myocardial infarction [Recovering/Resolving]
  - Pulmonary arterial pressure increased [Not Recovered/Not Resolved]
  - Upper limb fracture [Recovering/Resolving]
  - Arrhythmia [Unknown]
  - Weight increased [Recovering/Resolving]
  - Chest injury [Recovering/Resolving]
  - Facial bones fracture [Recovering/Resolving]
  - Hypotension [Not Recovered/Not Resolved]
  - Road traffic accident [Recovering/Resolving]
  - Peripheral coldness [Not Recovered/Not Resolved]
  - Cardiac failure [Not Recovered/Not Resolved]
  - Headache [Not Recovered/Not Resolved]
  - Neck pain [Not Recovered/Not Resolved]
  - Stress [Not Recovered/Not Resolved]
  - Product supply issue [Unknown]
  - Oropharyngeal pain [Not Recovered/Not Resolved]

NARRATIVE: CASE EVENT DATE: 20170910
